FAERS Safety Report 26060058 (Version 1)
Quarter: 2025Q4

REPORT INFORMATION
  Report Type: Report from Study
  Country: US (occurrence: US)
  Receive Date: 20251118
  Receipt Date: 20251118
  Transmission Date: 20260118
  Serious: Yes (Hospitalization, Other)
  Sender: GILEAD
  Company Number: US-GILEAD-2025-0736132

PATIENT
  Sex: Female

DRUGS (14)
  1. AZTREONAM LYSINE [Suspect]
     Active Substance: AZTREONAM LYSINE
     Indication: Pseudomonas infection
     Dosage: INHALE 75 MG 3 TIMES DAILY 28 DAYS ON, 28 DAYS OFF. QUANTITY OF 84
     Route: 055
  2. DEXAMETHASONE [Concomitant]
     Active Substance: DEXAMETHASONE
  3. SYNTHROID [Concomitant]
     Active Substance: LEVOTHYROXINE SODIUM
  4. BACLOFEN [Concomitant]
     Active Substance: BACLOFEN
  5. PHENOBARBITAL [Concomitant]
     Active Substance: PHENOBARBITAL
  6. LASIX [Concomitant]
     Active Substance: FUROSEMIDE
  7. HIZENTRA [Concomitant]
     Active Substance: HUMAN IMMUNOGLOBULIN G
  8. KEPPRA [Concomitant]
     Active Substance: LEVETIRACETAM
  9. ZYRTEC [Concomitant]
     Active Substance: CETIRIZINE HYDROCHLORIDE
  10. ALBUTEROL SULFATE [Concomitant]
     Active Substance: ALBUTEROL SULFATE
  11. PREVACID [Concomitant]
     Active Substance: LANSOPRAZOLE
  12. SINGULAIR [Concomitant]
     Active Substance: MONTELUKAST SODIUM
  13. SODIUM CHLORIDE [Concomitant]
     Active Substance: SODIUM CHLORIDE
  14. MELATONIN [Concomitant]
     Active Substance: MELATONIN

REACTIONS (4)
  - Pneumonia bacterial [Unknown]
  - Mechanical ventilation [Not Recovered/Not Resolved]
  - Oedema [Unknown]
  - Product use in unapproved indication [Not Recovered/Not Resolved]
